FAERS Safety Report 5488756-0 (Version None)
Quarter: 2007Q4

REPORT INFORMATION
  Report Type: 
  Country: None (occurrence: None)
  Receive Date: 20071017
  Receipt Date: 20071010
  Transmission Date: 20080405
  Serious: Yes (Hospitalization)
  Sender: FDA-Public Use
  Company Number: US-BOEHRINGER INGELHEIM PHARMACEUTICALS, INC.-2007-BP-22539BP

PATIENT
  Age: 55 Year
  Sex: Male

DRUGS (4)
  1. MOBIC [Suspect]
     Indication: OSTEOARTHRITIS
     Dates: start: 20070823
  2. STUDY DRUG [Suspect]
     Indication: OSTEOARTHRITIS
  3. LORATADINE [Concomitant]
  4. CETIRIZINE+PSEUDOEPHEDRINE [Concomitant]

REACTIONS (2)
  - ARTERIAL OCCLUSIVE DISEASE [None]
  - TRANSIENT ISCHAEMIC ATTACK [None]
